FAERS Safety Report 14140628 (Version 1)
Quarter: 2017Q4

REPORT INFORMATION
  Report Type: Spontaneous
  Country: US (occurrence: US)
  Receive Date: 20171030
  Receipt Date: 20171030
  Transmission Date: 20180321
  Serious: No
  Sender: FDA-Public Use
  Company Number: US-PFIZER INC-2017463119

PATIENT
  Age: 21 Year
  Sex: Male
  Weight: 64.85 kg

DRUGS (1)
  1. GENOTROPIN [Suspect]
     Active Substance: SOMATROPIN
     Indication: HYPOPITUITARISM
     Dosage: 0.4 MG, DAILY (EVERY DAY/INJECT 0.4 MG UNDER THE SKIN)
     Route: 058
     Dates: start: 201709

REACTIONS (1)
  - Anger [Unknown]

NARRATIVE: CASE EVENT DATE: 201709
